FAERS Safety Report 8990663 (Version 1)
Quarter: 2012Q4

REPORT INFORMATION
  Report Type: 
  Country: US (occurrence: US)
  Receive Date: 20121228
  Receipt Date: 20121228
  Transmission Date: 20130627
  Serious: No
  Sender: FDA-Public Use
  Company Number: US-009507513-1212USA009827

PATIENT
  Age: 57 Year
  Sex: Female

DRUGS (5)
  1. EMEND [Suspect]
     Indication: PROPHYLAXIS OF NAUSEA AND VOMITING
     Dosage: 125 mg, day 1
     Route: 048
  2. EMEND [Suspect]
     Dosage: 80 mg, day 2
     Route: 048
  3. EMEND [Suspect]
     Dosage: 80 mg, day 3
     Route: 048
  4. CORTICOSTEROIDS (UNSPECIFIED) [Concomitant]
  5. PROCHLORPERAZINE [Concomitant]

REACTIONS (1)
  - Dysphagia [Unknown]
